FAERS Safety Report 4375101-7 (Version None)
Quarter: 2004Q2

REPORT INFORMATION
  Report Type: 
  Country: None (occurrence: None)
  Receive Date: 20040609
  Receipt Date: 20040510
  Transmission Date: 20050107
  Serious: No
  Sender: FDA-Public Use
  Company Number: JP-MERCK-0405USA00855

PATIENT
  Age: 69 Year
  Sex: Female
  Weight: 60 kg

DRUGS (6)
  1. DILTIAZEM HYDROCHLORIDE [Concomitant]
     Indication: ANGINA PECTORIS
     Route: 065
     Dates: start: 20031224
  2. TRUSOPT [Suspect]
     Indication: GLAUCOMA
     Route: 047
     Dates: start: 20040420, end: 20040420
  3. TRUSOPT [Suspect]
     Route: 047
     Dates: start: 20040421, end: 20040422
  4. TRUSOPT [Suspect]
     Route: 047
     Dates: start: 20040423, end: 20040423
  5. NICORANDIL [Concomitant]
     Indication: ANGINA PECTORIS
     Route: 065
     Dates: start: 20040201
  6. PIRENOXINE [Concomitant]
     Indication: CATARACT
     Route: 047
     Dates: start: 20020404

REACTIONS (1)
  - CHEST DISCOMFORT [None]
